FAERS Safety Report 20017758 (Version 1)
Quarter: 2021Q4

REPORT INFORMATION
  Report Type: Spontaneous
  Country: CN (occurrence: None)
  Receive Date: 20211101
  Receipt Date: 20211101
  Transmission Date: 20220303
  Serious: Yes (Other)
  Sender: FDA-Public Use
  Company Number: CN-ROCHE-2946655

PATIENT
  Age: 40 Year
  Sex: Male

DRUGS (19)
  1. AVASTIN [Suspect]
     Active Substance: BEVACIZUMAB
     Indication: Adenocarcinoma metastatic
     Route: 065
     Dates: start: 201601, end: 201604
  2. AVASTIN [Suspect]
     Active Substance: BEVACIZUMAB
     Route: 065
     Dates: start: 201604, end: 201609
  3. AVASTIN [Suspect]
     Active Substance: BEVACIZUMAB
     Route: 065
     Dates: start: 201609
  4. VINORELBINE [Suspect]
     Active Substance: VINORELBINE TARTRATE
     Indication: Adenocarcinoma metastatic
     Route: 065
     Dates: start: 201601, end: 201604
  5. NEDAPLATIN [Suspect]
     Active Substance: NEDAPLATIN
     Indication: Adenocarcinoma metastatic
     Route: 065
     Dates: start: 201601, end: 201604
  6. NIVOLUMAB [Suspect]
     Active Substance: NIVOLUMAB
     Indication: Adenocarcinoma metastatic
     Route: 065
     Dates: start: 201609, end: 201706
  7. NIVOLUMAB [Suspect]
     Active Substance: NIVOLUMAB
     Route: 065
     Dates: start: 201706, end: 201708
  8. NIVOLUMAB [Suspect]
     Active Substance: NIVOLUMAB
     Route: 065
     Dates: start: 201708, end: 201805
  9. NIVOLUMAB [Suspect]
     Active Substance: NIVOLUMAB
     Route: 065
     Dates: start: 201805, end: 2018
  10. NIVOLUMAB [Suspect]
     Active Substance: NIVOLUMAB
     Route: 065
     Dates: start: 2019
  11. NIVOLUMAB [Suspect]
     Active Substance: NIVOLUMAB
     Route: 065
     Dates: start: 2020
  12. NIVOLUMAB [Suspect]
     Active Substance: NIVOLUMAB
     Route: 065
     Dates: start: 2021
  13. IPILIMUMAB [Concomitant]
     Active Substance: IPILIMUMAB
     Indication: Adenocarcinoma metastatic
     Dates: start: 201708, end: 201805
  14. IPILIMUMAB [Concomitant]
     Active Substance: IPILIMUMAB
     Dates: start: 201805, end: 2018
  15. DECITABINE [Concomitant]
     Active Substance: DECITABINE
     Indication: Adenocarcinoma metastatic
     Dates: start: 201708, end: 201805
  16. LENALIDOMIDE [Concomitant]
     Active Substance: LENALIDOMIDE
     Indication: Adenocarcinoma metastatic
     Route: 048
     Dates: start: 201805, end: 2018
  17. LENALIDOMIDE [Concomitant]
     Active Substance: LENALIDOMIDE
     Dates: start: 2019
  18. LENALIDOMIDE [Concomitant]
     Active Substance: LENALIDOMIDE
     Dates: start: 2020
  19. LENALIDOMIDE [Concomitant]
     Active Substance: LENALIDOMIDE
     Dates: start: 2021

REACTIONS (3)
  - Gastrointestinal disorder [Unknown]
  - Gingival bleeding [Unknown]
  - Myelosuppression [Unknown]
